FAERS Safety Report 8991280 (Version 1)
Quarter: 2012Q4

REPORT INFORMATION
  Report Type: 
  Country: GB (occurrence: GB)
  Receive Date: 20121231
  Receipt Date: 20121231
  Transmission Date: 20130627
  Serious: Yes (Hospitalization, Other)
  Sender: FDA-Public Use
  Company Number: GB-ACCORD-015709

PATIENT
  Age: 48 Year
  Sex: Female

DRUGS (6)
  1. QUETIAPINE FUMARATE [Suspect]
     Indication: PARANOID PSYCHOSIS
     Dosage: 300 mg, daily
     Route: 048
     Dates: start: 201108, end: 201112
  2. MOVICOL [Concomitant]
     Indication: CONSTIPATION
     Dosage: 1 satched BID
     Route: 048
  3. OLANZAPINE [Suspect]
     Indication: DRUG USE FOR UNKNOWN INDICATION
     Dosage: 17.5 mg, daily
     Route: 048
     Dates: end: 201106
  4. CLOZARIL [Suspect]
     Indication: SCHIZOPHRENIA
     Route: 048
     Dates: start: 20120820
  5. SOLIFENACIN [Concomitant]
     Indication: URGE INCONTINENCE
     Dosage: 5 mg, ONCE/SINGLE
     Route: 048
  6. RISPERIDONE [Suspect]
     Indication: PARANOID PSYCHOSIS
     Route: 048
     Dates: start: 201201, end: 201207

REACTIONS (2)
  - Fall [Unknown]
  - Multiple sclerosis [Unknown]
